FAERS Safety Report 21017346 (Version 6)
Quarter: 2022Q4

REPORT INFORMATION
  Report Type: Spontaneous
  Country: CA (occurrence: CA)
  Receive Date: 20220628
  Receipt Date: 20221005
  Transmission Date: 20230113
  Serious: Yes (Other)
  Sender: FDA-Public Use
  Company Number: CA-PFIZER INC-202101654369

PATIENT
  Age: 71 Year
  Sex: Female
  Weight: 56.5 kg

DRUGS (24)
  1. ZIRABEV [Suspect]
     Active Substance: BEVACIZUMAB-BVZR
     Indication: Glioblastoma
     Dosage: 900 MG, EVERY 3 WEEKS
     Route: 042
     Dates: start: 20211208
  2. ZIRABEV [Suspect]
     Active Substance: BEVACIZUMAB-BVZR
     Dosage: 900 MG, EVERY 3 WEEKS
     Route: 042
     Dates: start: 20211208
  3. ZIRABEV [Suspect]
     Active Substance: BEVACIZUMAB-BVZR
     Dosage: 900 MG, EVERY 3 WEEKS
     Route: 042
     Dates: start: 20211208
  4. ZIRABEV [Suspect]
     Active Substance: BEVACIZUMAB-BVZR
     Dosage: 900 MG, EVERY 3 WEEKS
     Route: 042
     Dates: start: 20211208, end: 20220927
  5. ZIRABEV [Suspect]
     Active Substance: BEVACIZUMAB-BVZR
     Dosage: 900MG Q3,REPEAT-6
     Route: 042
     Dates: start: 20211208
  6. ZIRABEV [Suspect]
     Active Substance: BEVACIZUMAB-BVZR
     Dosage: 900MG Q3,REPEAT-6
     Route: 042
     Dates: start: 20211208
  7. ZIRABEV [Suspect]
     Active Substance: BEVACIZUMAB-BVZR
     Dosage: 800 MG, EVERY 3 WEEKS X 6
     Route: 042
     Dates: start: 20211208
  8. ZIRABEV [Suspect]
     Active Substance: BEVACIZUMAB-BVZR
     Dosage: 800 MG, EVERY 3 WEEKS X 6
     Route: 042
     Dates: start: 20211208
  9. ZIRABEV [Suspect]
     Active Substance: BEVACIZUMAB-BVZR
     Dosage: 900 MG, Q 3, REPEAT 3
     Route: 042
     Dates: start: 20211208
  10. ZIRABEV [Suspect]
     Active Substance: BEVACIZUMAB-BVZR
     Dosage: 900 MG, EVERY 3 WEEKS
     Route: 042
     Dates: start: 20220217, end: 20220217
  11. ZIRABEV [Suspect]
     Active Substance: BEVACIZUMAB-BVZR
     Dosage: 900 MG, EVERY 3 WEEKS
     Route: 042
     Dates: start: 20220217, end: 20220217
  12. ZIRABEV [Suspect]
     Active Substance: BEVACIZUMAB-BVZR
     Dosage: 900 MG, EVERY 3 WEEKS
     Route: 042
     Dates: start: 20220331, end: 20220331
  13. ZIRABEV [Suspect]
     Active Substance: BEVACIZUMAB-BVZR
     Dosage: 900 MG, EVERY 3 WEEKS
     Route: 042
     Dates: start: 20220331
  14. ZIRABEV [Suspect]
     Active Substance: BEVACIZUMAB-BVZR
     Dosage: 800 MG, EVERY 3 WEEKS
     Route: 042
     Dates: start: 20220512
  15. ZIRABEV [Suspect]
     Active Substance: BEVACIZUMAB-BVZR
     Dosage: 100 MG, EVERY 3 WEEKS
     Route: 042
     Dates: start: 20220512
  16. ZIRABEV [Suspect]
     Active Substance: BEVACIZUMAB-BVZR
     Dosage: 800 MG, EVERY 3 WEEKS (SITE: RIGHT FOREARM)
     Route: 042
     Dates: start: 20220602
  17. ZIRABEV [Suspect]
     Active Substance: BEVACIZUMAB-BVZR
     Dosage: 100 MG, EVERY 3 WEEKS (SITE: RIGHT FOREARM)
     Route: 042
     Dates: start: 20220602
  18. ZIRABEV [Suspect]
     Active Substance: BEVACIZUMAB-BVZR
     Dosage: 800 MG (LEFT FOREARM), EVERY 3 WEEKS (SITE: LEFT FOREARM)
     Route: 042
     Dates: start: 20220623
  19. ZIRABEV [Suspect]
     Active Substance: BEVACIZUMAB-BVZR
     Dosage: 800 MG (LEFT FOREARM), EVERY 3 WEEKS (SITE: LEFT FOREARM)
     Route: 042
     Dates: start: 20220812
  20. ZIRABEV [Suspect]
     Active Substance: BEVACIZUMAB-BVZR
     Dosage: 100 MG (LEFT FOREARM), EVERY 3 WEEKS
     Route: 042
     Dates: start: 20220812
  21. ZIRABEV [Suspect]
     Active Substance: BEVACIZUMAB-BVZR
     Dosage: 900 MG, EVERY 3 WEEKS
     Route: 042
     Dates: start: 20220927, end: 20220927
  22. LOMUSTINE [Concomitant]
     Active Substance: LOMUSTINE
     Dosage: UNK
     Dates: end: 20211231
  23. PROCHLORAZINE [Concomitant]
     Dosage: 10 MG
     Route: 048
  24. VEPESID [Concomitant]
     Active Substance: ETOPOSIDE
     Dosage: 50 MG
     Route: 048

REACTIONS (12)
  - Urinary tract infection bacterial [Unknown]
  - Weight increased [Recovered/Resolved]
  - Weight decreased [Unknown]
  - Heart rate decreased [Recovered/Resolved]
  - Blood pressure increased [Unknown]
  - Headache [Recovered/Resolved]
  - Nausea [Recovered/Resolved]
  - Vomiting [Recovered/Resolved]
  - Off label use [Unknown]
  - Off label use [Unknown]
  - Product dose omission issue [Unknown]
  - Inappropriate schedule of product administration [Unknown]

NARRATIVE: CASE EVENT DATE: 20211208
